FAERS Safety Report 21024266 (Version 1)
Quarter: 2022Q2

REPORT INFORMATION
  Report Type: Report from Study
  Country: PH (occurrence: PH)
  Receive Date: 20220629
  Receipt Date: 20220629
  Transmission Date: 20220720
  Serious: Yes (Hospitalization, Other)
  Sender: FDA-Public Use
  Company Number: PH-PFIZER INC-PV202200008843

PATIENT
  Age: 69 Year
  Sex: Male
  Weight: 61.4 kg

DRUGS (3)
  1. CARBOPLATIN [Suspect]
     Active Substance: CARBOPLATIN
     Indication: Non-small cell lung cancer
     Dosage: MILLIGRAM/SQ. METER, AUC 5, Q3W (DAY 1 OF EACH 21-DAY CYCLE)
     Route: 042
     Dates: start: 20220405, end: 20220517
  2. PEMETREXED [Suspect]
     Active Substance: PEMETREXED
     Indication: Non-small cell lung cancer
     Dosage: MILLIGRAM/SQ. METER, Q3W (DAY 1 OF EACH 21-DAY CYCLE)
     Route: 042
     Dates: start: 20220405, end: 20220517
  3. INVESTIGATIONAL PRODUCT [Suspect]
     Active Substance: INVESTIGATIONAL PRODUCT
     Indication: Non-small cell lung cancer
     Dosage: UNK
     Dates: start: 20220405, end: 20220517

REACTIONS (1)
  - Electrolyte imbalance [Recovered/Resolved]

NARRATIVE: CASE EVENT DATE: 20220606
